FAERS Safety Report 9998192 (Version 1)
Quarter: 2014Q1

REPORT INFORMATION
  Report Type: Spontaneous
  Country: US (occurrence: None)
  Receive Date: 20140304
  Receipt Date: 20140304
  Transmission Date: 20141002
  Serious: Yes (Hospitalization, Other)
  Sender: FDA-Public Use
  Company Number: RB-53632-2013

PATIENT
  Sex: Male

DRUGS (5)
  1. SUBOXONE [Suspect]
     Indication: DRUG DEPENDENCE
     Dosage: DOSAGE DETAILS UNKNOWN
     Route: 064
  2. BUPRENORPHINE [Suspect]
     Indication: DRUG DEPENDENCE
     Route: 064
     Dates: start: 20121001
  3. IRON [Suspect]
     Indication: PREGNANCY
     Dosage: DETAILS UNKNOWN
     Route: 063
  4. PRENATAL VITAMINS [Suspect]
     Indication: PREGNANCY
     Dosage: DETAILS UNKNOWN
     Route: 064
  5. NICOTINE [Suspect]
     Indication: TOBACCO USER
     Dosage: CIGARETTES DAILY
     Route: 064
     Dates: start: 201206, end: 20130327

REACTIONS (3)
  - Foetal exposure during pregnancy [None]
  - Drug withdrawal syndrome neonatal [None]
  - Exposure during breast feeding [None]
